FAERS Safety Report 4308853-2 (Version None)
Quarter: 2004Q1

REPORT INFORMATION
  Report Type: 
  Country: None (occurrence: None)
  Receive Date: 20040227
  Receipt Date: 20040224
  Transmission Date: 20041129
  Serious: Yes (Hospitalization)
  Sender: FDA-Public Use
  Company Number: MK200402-0101-2

PATIENT
  Age: 40 Year
  Sex: Female

DRUGS (12)
  1. ANAFRANIL CAP [Suspect]
     Dates: start: 20030801, end: 20040106
  2. GLEEVEC [Suspect]
     Dates: start: 20030801, end: 20031215
  3. DIANE [Suspect]
     Dates: start: 20030801, end: 20031215
  4. CORTANCYL [Suspect]
     Dates: start: 20030801, end: 20031215
  5. LASILIX [Suspect]
     Dates: start: 20030801, end: 20031215
  6. ZYRTEC [Suspect]
     Dates: start: 20030801, end: 20031215
  7. AVLOCARDYL [Suspect]
     Dates: start: 20030801, end: 20031215
  8. TARDYFERON [Suspect]
     Dates: start: 20030801, end: 20031215
  9. DUPHALAC [Concomitant]
  10. IMMUGRIP [Concomitant]
  11. LYSO-6 [Concomitant]
  12. SIDROGA TEE [Concomitant]

REACTIONS (5)
  - CHOLANGITIS [None]
  - CHOLESTASIS [None]
  - CYTOLYTIC HEPATITIS [None]
  - HEPATOTOXICITY [None]
  - URTICARIA [None]
